FAERS Safety Report 9659935 (Version 10)
Quarter: 2014Q2

REPORT INFORMATION
  Report Type: Spontaneous
  Country: IT (occurrence: IT)
  Receive Date: 20131031
  Receipt Date: 20140612
  Transmission Date: 20141212
  Serious: Yes (Life-Threatening, Hospitalization, Other)
  Sender: FDA-Public Use
  Company Number: IT-AMGEN-ITASP2013075835

PATIENT
  Age: 83 Year
  Sex: Male

DRUGS (4)
  1. ARANESP [Suspect]
     Indication: NEPHROGENIC ANAEMIA
     Dosage: 60 MUG, QWK
     Route: 058
     Dates: start: 20120701, end: 20131001
  2. MIRCERA [Suspect]
     Indication: NEPHROGENIC ANAEMIA
     Dosage: 75 MUG, QMO
     Route: 058
     Dates: start: 20110201, end: 20120701
  3. TELMISARTAN [Concomitant]
     Indication: HYPERTENSION
     Dosage: 80 MG, UNK
     Route: 048
  4. ACETYLSALICYLIC ACID [Concomitant]
     Route: 048

REACTIONS (7)
  - Anaemia [Unknown]
  - Aplasia pure red cell [Unknown]
  - Anti-erythropoietin antibody positive [Recovered/Resolved]
  - Neutralising antibodies positive [Recovered/Resolved]
  - Asthenia [Unknown]
  - Fatigue [Unknown]
  - Drug ineffective [Unknown]
